FAERS Safety Report 25813998 (Version 2)
Quarter: 2025Q4

REPORT INFORMATION
  Report Type: Spontaneous
  Country: US (occurrence: US)
  Receive Date: 20250917
  Receipt Date: 20251217
  Transmission Date: 20260117
  Serious: No
  Sender: ARDELYX
  Company Number: US-ARDELYX-2025ARDX004662

PATIENT
  Age: 64 Year
  Sex: Male

DRUGS (11)
  1. XPHOZAH [Suspect]
     Active Substance: TENAPANOR HYDROCHLORIDE
     Indication: Chronic kidney disease
     Dosage: 30 MG, BEFORE BREAKFAST
     Route: 048
     Dates: start: 20250604, end: 2025
  2. AMIODARONE [Concomitant]
     Active Substance: AMIODARONE
     Indication: Product used for unknown indication
     Dosage: 1 TABS, QD
     Route: 048
     Dates: start: 20250911
  3. ASPIRIN [Concomitant]
     Active Substance: ASPIRIN
     Indication: Product used for unknown indication
     Dosage: 1 TABS, QD
     Route: 048
     Dates: start: 20250911
  4. ATORVASTATIN CALCIUM [Concomitant]
     Active Substance: ATORVASTATIN CALCIUM
     Indication: Product used for unknown indication
     Dosage: 1 TABS, QD
     Route: 048
     Dates: start: 20200123
  5. CINACALCET HYDROCHLORIDE [Concomitant]
     Active Substance: CINACALCET HYDROCHLORIDE
     Indication: Product used for unknown indication
     Dosage: UNK, BID, 1 TABLET BID
     Route: 048
     Dates: start: 20250105
  6. D3-2000 [Concomitant]
     Indication: Product used for unknown indication
     Dosage: 1 CAPS, QD
     Route: 048
     Dates: start: 20210223
  7. ELIQUIS [Concomitant]
     Active Substance: APIXABAN
     Indication: Product used for unknown indication
     Dosage: 1 TABS, BID
     Route: 048
     Dates: start: 20250911
  8. LANTUS [Concomitant]
     Active Substance: INSULIN GLARGINE
     Indication: Product used for unknown indication
     Dosage: 10 UNITS, QAM (EACH MORN)
     Route: 058
     Dates: start: 20200123
  9. METOPROLOL SUCCINATE [Concomitant]
     Active Substance: METOPROLOL SUCCINATE
     Indication: Product used for unknown indication
     Dosage: 1 TABS
     Route: 048
     Dates: start: 20250911
  10. NITROGLYCERIN [Concomitant]
     Active Substance: NITROGLYCERIN
     Indication: Product used for unknown indication
     Dosage: 1 TABS, PRN
     Route: 060
     Dates: start: 20250911
  11. SEVELAMER CARBONATE [Concomitant]
     Active Substance: SEVELAMER CARBONATE
     Indication: Product used for unknown indication
     Dosage: 4 MISCELL/ DAY WITH MEAL
     Route: 048
     Dates: start: 20250407

REACTIONS (1)
  - Diarrhoea [Recovered/Resolved]

NARRATIVE: CASE EVENT DATE: 20250604
